FAERS Safety Report 7252704-3 (Version None)
Quarter: 2011Q1

REPORT INFORMATION
  Report Type: 
  Country: None (occurrence: None)
  Receive Date: 20110129
  Receipt Date: 20100414
  Transmission Date: 20110831
  Serious: Yes (Other)
  Sender: FDA-Public Use
  Company Number: US-ABBOTT-10P-163-0636429-00

PATIENT
  Sex: Male
  Weight: 90.8 kg

DRUGS (5)
  1. HUMIRA [Suspect]
     Dates: start: 20080701
  2. HUMIRA [Suspect]
     Dates: start: 20080711, end: 20080927
  3. HUMIRA [Suspect]
     Dates: start: 20090101, end: 20090826
  4. HUMIRA [Suspect]
     Indication: CROHN'S DISEASE
     Dates: start: 20080627, end: 20080627
  5. HUMIRA [Suspect]
     Dates: start: 20090909, end: 20100108

REACTIONS (3)
  - ANAL ABSCESS [None]
  - DRUG EFFECT DECREASED [None]
  - INCORRECT DRUG ADMINISTRATION DURATION [None]
